FAERS Safety Report 4887671-0 (Version None)
Quarter: 2006Q1

REPORT INFORMATION
  Report Type: 
  Country: None (occurrence: None)
  Receive Date: 20060119
  Receipt Date: 20060119
  Transmission Date: 20060701
  Serious: No
  Sender: FDA-Public Use
  Company Number: None

PATIENT
  Age: 33 Year
  Sex: Female
  Weight: 67.1324 kg

DRUGS (2)
  1. CYCLOBENZAPRINE 10 MG [Suspect]
     Indication: MUSCLE SPASMS
     Dates: start: 20060113, end: 20060113
  2. CYCLOBENZAPRINE 10 MG [Suspect]
     Indication: NERVE COMPRESSION
     Dates: start: 20060113, end: 20060113

REACTIONS (5)
  - ASTHENIA [None]
  - DIZZINESS [None]
  - DRUG INEFFECTIVE [None]
  - NAUSEA [None]
  - SOMNOLENCE [None]
